FAERS Safety Report 9255253 (Version 1)
Quarter: 2013Q2

REPORT INFORMATION
  Report Type: Report from Study
  Country: CA (occurrence: CA)
  Receive Date: 20130425
  Receipt Date: 20130425
  Transmission Date: 20140414
  Serious: Yes (Other)
  Sender: FDA-Public Use
  Company Number: CA-JNJFOC-20130408158

PATIENT
  Age: 58 Year
  Sex: Female
  Weight: 85.73 kg

DRUGS (4)
  1. STELARA [Suspect]
     Indication: PSORIASIS
     Dates: start: 201301
  2. STELARA [Suspect]
     Indication: PSORIASIS
     Dates: start: 2011, end: 201301
  3. METHOTREXATE [Concomitant]
     Indication: PSORIASIS
     Dates: start: 2010
  4. CIPRALEX [Concomitant]
     Indication: DEPRESSION

REACTIONS (4)
  - Depression [Unknown]
  - Therapeutic response decreased [Unknown]
  - Anxiety [Unknown]
  - Weight decreased [Unknown]
